FAERS Safety Report 25949062 (Version 1)
Quarter: 2025Q4

REPORT INFORMATION
  Report Type: Spontaneous
  Country: US (occurrence: US)
  Receive Date: 20251022
  Receipt Date: 20251022
  Transmission Date: 20260118
  Serious: Yes (Other)
  Sender: AMGEN
  Company Number: US-AMGEN-USASP2025205413

PATIENT
  Age: 15 Month
  Sex: Female

DRUGS (3)
  1. PREDNISONE [Suspect]
     Active Substance: PREDNISONE
     Indication: Immune thrombocytopenia
     Dosage: UNK
     Route: 048
  2. PREDNISONE [Suspect]
     Active Substance: PREDNISONE
     Indication: Autoimmune lymphoproliferative syndrome
  3. Immunoglobulin [Concomitant]
     Indication: Immune thrombocytopenia
     Route: 040

REACTIONS (16)
  - Cytopenia [Unknown]
  - Pneumococcal bacteraemia [Unknown]
  - Autoimmune lymphoproliferative syndrome [Unknown]
  - Uveitis [Unknown]
  - Pelvic inflammatory disease [Unknown]
  - Appendicitis [Unknown]
  - Thrombocytopenia [Unknown]
  - Sepsis [Unknown]
  - Iridocyclitis [Unknown]
  - Adverse drug reaction [Unknown]
  - Erythromelalgia [Unknown]
  - Keratopathy [Unknown]
  - Dry eye [Unknown]
  - Erythema nodosum [Unknown]
  - Off label use [Unknown]
  - Alopecia [Unknown]
